FAERS Safety Report 7410102-3 (Version None)
Quarter: 2011Q2

REPORT INFORMATION
  Report Type: 
  Country: None (occurrence: None)
  Receive Date: 20110412
  Receipt Date: 20110401
  Transmission Date: 20111010
  Serious: Yes (Disabling, Other)
  Sender: FDA-Public Use
  Company Number: US-ROCHE-467356

PATIENT
  Sex: Female
  Weight: 67.6 kg

DRUGS (3)
  1. ACCUTANE [Suspect]
     Indication: ACNE
     Route: 048
     Dates: start: 19940101, end: 19940401
  2. BIRTH CONTROL PILLS NOS [Concomitant]
  3. ACCUTANE [Suspect]
     Route: 048
     Dates: start: 20010601, end: 20011001

REACTIONS (22)
  - THYROID NEOPLASM [None]
  - CARDIAC MURMUR [None]
  - IRRITABLE BOWEL SYNDROME [None]
  - COLITIS ULCERATIVE [None]
  - COLITIS [None]
  - THYROID CANCER [None]
  - BACK PAIN [None]
  - HYPERGLYCAEMIA [None]
  - BREAST NEOPLASM [None]
  - ARTHRITIS [None]
  - CROHN'S DISEASE [None]
  - ANXIETY [None]
  - ARTHRALGIA [None]
  - SPONDYLOLISTHESIS [None]
  - ANAEMIA [None]
  - FATIGUE [None]
  - HYPOTHYROIDISM [None]
  - FEAR [None]
  - AUTOIMMUNE THYROIDITIS [None]
  - SCIATICA [None]
  - MOOD SWINGS [None]
  - INFLAMMATORY BOWEL DISEASE [None]
